FAERS Safety Report 4864585-3 (Version None)
Quarter: 2005Q4

REPORT INFORMATION
  Report Type: 
  Country: None (occurrence: None)
  Receive Date: 20051222
  Receipt Date: 20051130
  Transmission Date: 20060501
  Serious: Yes (Hospitalization, Other)
  Sender: FDA-Public Use
  Company Number: NZ-NOVOPROD-249063

PATIENT
  Age: 7 Year
  Sex: Female

DRUGS (1)
  1. NORDITROPIN SIMPLEXX [Suspect]
     Indication: BODY HEIGHT BELOW NORMAL

REACTIONS (7)
  - BENIGN NEOPLASM OF SPINAL CORD [None]
  - CACHEXIA [None]
  - CONGENITAL SPINAL CORD ANOMALY [None]
  - DYSSTASIA [None]
  - ENURESIS [None]
  - GAIT DISTURBANCE [None]
  - HYPERREFLEXIA [None]
